FAERS Safety Report 6157080-5 (Version None)
Quarter: 2009Q2

REPORT INFORMATION
  Report Type: 
  Country: None (occurrence: None)
  Receive Date: 20090416
  Receipt Date: 20090406
  Transmission Date: 20091009
  Serious: Yes (Death)
  Sender: FDA-Public Use
  Company Number: US-BIOGENIDEC-2009BI008181

PATIENT
  Age: 64 Year
  Sex: Male

DRUGS (9)
  1. TYSABRI [Suspect]
     Indication: MULTIPLE SCLEROSIS
     Route: 042
     Dates: start: 20081117, end: 20090212
  2. OXYCONTIN [Concomitant]
     Indication: BACK PAIN
  3. BACLOFEN [Concomitant]
     Indication: MUSCLE SPASTICITY
     Route: 048
     Dates: start: 19920101
  4. MORPHINE [Concomitant]
     Indication: PAIN
     Route: 048
     Dates: start: 19990101
  5. FLOMAX [Concomitant]
     Indication: URINARY RETENTION
     Route: 048
     Dates: start: 20090101
  6. PRILOSEC [Concomitant]
     Indication: DYSPEPSIA
     Route: 048
     Dates: start: 19940101
  7. MAGNESIUM SULFATE [Concomitant]
     Indication: MEDICAL DIET
     Route: 048
  8. FIBER TABLETS [Concomitant]
     Indication: MEDICAL DIET
     Route: 048
  9. TEMAZEPAM [Concomitant]
     Indication: SLEEP DISORDER
     Dates: start: 19980101

REACTIONS (5)
  - ABNORMAL BEHAVIOUR [None]
  - COMPLETED SUICIDE [None]
  - HEADACHE [None]
  - IRRITABILITY [None]
  - MENTAL IMPAIRMENT [None]
